FAERS Safety Report 5908921-5 (Version None)
Quarter: 2008Q4

REPORT INFORMATION
  Report Type: 
  Country: None (occurrence: None)
  Receive Date: 20081001
  Receipt Date: 20080917
  Transmission Date: 20090506
  Serious: Yes (Other)
  Sender: FDA-Public Use
  Company Number: SPV1-2008-01998

PATIENT
  Sex: Male

DRUGS (1)
  1. DAYTRANA [Suspect]
     Dosage: 1X/DAY:QD, TRANSDERMAL
     Route: 062

REACTIONS (1)
  - ADDISON'S DISEASE [None]
